FAERS Safety Report 22271805 (Version 1)
Quarter: 2023Q2

REPORT INFORMATION
  Report Type: Spontaneous
  Country: JP (occurrence: JP)
  Receive Date: 20230502
  Receipt Date: 20230502
  Transmission Date: 20230721
  Serious: Yes (Other)
  Sender: FDA-Public Use
  Company Number: JP-ABBVIE-4746252

PATIENT

DRUGS (2)
  1. VENCLEXTA [Suspect]
     Active Substance: VENETOCLAX
     Indication: Acute myeloid leukaemia
     Route: 048
  2. AZACITIDINE [Concomitant]
     Active Substance: AZACITIDINE
     Indication: Acute myeloid leukaemia

REACTIONS (24)
  - Febrile neutropenia [Unknown]
  - Pneumonia [Unknown]
  - Weight increased [Unknown]
  - Tumour lysis syndrome [Unknown]
  - Organising pneumonia [Unknown]
  - Infection [Unknown]
  - Traumatic intracranial haemorrhage [Unknown]
  - Tooth infection [Unknown]
  - Acute myeloid leukaemia [Unknown]
  - Decreased appetite [Unknown]
  - Stomatitis [Unknown]
  - Pneumocystis jirovecii pneumonia [Unknown]
  - Malaise [Unknown]
  - Disseminated intravascular coagulation [Unknown]
  - Nausea [Unknown]
  - Acute myeloid leukaemia recurrent [Unknown]
  - Blood creatinine increased [Unknown]
  - Constipation [Unknown]
  - Device related infection [Unknown]
  - Cholecystitis [Unknown]
  - Haemophagocytic lymphohistiocytosis [Unknown]
  - Sepsis [Unknown]
  - Nausea [Unknown]
  - Erythema [Unknown]
